FAERS Safety Report 15364292 (Version 1)
Quarter: 2018Q3

REPORT INFORMATION
  Report Type: Spontaneous
  Country: None (occurrence: CO)
  Receive Date: 20180909
  Receipt Date: 20180909
  Transmission Date: 20181010
  Serious: Yes (Other)
  Sender: FDA-Public Use
  Company Number: CO-POPULATION COUNCIL, INC.-2054779

PATIENT
  Age: 14 Year
  Sex: Female

DRUGS (1)
  1. JADELLE [Suspect]
     Active Substance: LEVONORGESTREL
     Indication: CONTRACEPTION
     Route: 059
     Dates: start: 20180829, end: 20180829

REACTIONS (2)
  - Complication of device removal [Unknown]
  - Intentional medical device removal by patient [Unknown]

NARRATIVE: CASE EVENT DATE: 20180829
